FAERS Safety Report 9499442 (Version 1)
Quarter: 2013Q3

REPORT INFORMATION
  Report Type: Spontaneous
  Country: US (occurrence: None)
  Receive Date: 20130903
  Receipt Date: 20130903
  Transmission Date: 20140515
  Serious: Yes (Hospitalization)
  Sender: FDA-Public Use
  Company Number: None

PATIENT
  Age: 51 Year
  Sex: Male
  Weight: 27.62 kg

DRUGS (1)
  1. ALFA 2 INTERFERON 2B (INTRON-A) [Suspect]
     Dosage: 235 MU
     Dates: end: 20120520

REACTIONS (1)
  - Blood creatine phosphokinase increased [None]
